FAERS Safety Report 25607362 (Version 1)
Quarter: 2025Q3

REPORT INFORMATION
  Report Type: Report from Study
  Country: BR (occurrence: BR)
  Receive Date: 20250725
  Receipt Date: 20250725
  Transmission Date: 20251020
  Serious: Yes (Other)
  Sender: ELI LILLY AND COMPANY
  Company Number: BR-Merck Healthcare KGaA-2025036532

PATIENT
  Sex: Male

DRUGS (7)
  1. CETUXIMAB [Suspect]
     Active Substance: CETUXIMAB
     Indication: Colorectal cancer metastatic
     Dosage: UNK, 2/M
     Route: 042
     Dates: start: 20200401
  2. CETUXIMAB [Suspect]
     Active Substance: CETUXIMAB
     Dosage: UNK, 2/M
     Route: 042
     Dates: start: 20230301
  3. LEUCOVORIN [Suspect]
     Active Substance: LEUCOVORIN\LEUCOVORIN CALCIUM
     Indication: Colorectal cancer metastatic
     Route: 065
     Dates: start: 20230301
  4. FLUOROURACIL [Suspect]
     Active Substance: FLUOROURACIL
     Indication: Colorectal cancer metastatic
     Route: 065
     Dates: start: 20230301
  5. IRINOTECAN [Suspect]
     Active Substance: IRINOTECAN
     Indication: Colorectal cancer metastatic
     Route: 065
     Dates: start: 20230301
  6. ATENOLOL [Concomitant]
     Active Substance: ATENOLOL
     Indication: Hypertension
  7. ATENOLOL [Concomitant]
     Active Substance: ATENOLOL

REACTIONS (3)
  - Immunodeficiency [Unknown]
  - Platelet count decreased [Unknown]
  - Off label use [Unknown]
